FAERS Safety Report 6718357-5 (Version None)
Quarter: 2010Q2

REPORT INFORMATION
  Report Type: 
  Country: None (occurrence: None)
  Receive Date: 20100505
  Receipt Date: 20100326
  Transmission Date: 20101027
  Serious: Yes (Hospitalization, Other)
  Sender: FDA-Public Use
  Company Number: AUR-APL-2010-00998

PATIENT
  Age: 58 Year
  Sex: Female
  Weight: 50.7 kg

DRUGS (1)
  1. PAROXETINE HCL [Suspect]
     Indication: PANIC DISORDER
     Dosage: 10-30MG - DAILY - ORAL
     Route: 048
     Dates: start: 20091002, end: 20091215

REACTIONS (3)
  - DISEASE RECURRENCE [None]
  - INGUINAL HERNIA [None]
  - REFUSAL OF TREATMENT BY PATIENT [None]
